FAERS Safety Report 10707252 (Version 1)
Quarter: 2015Q1

REPORT INFORMATION
  Report Type: Spontaneous
  Country: US (occurrence: US)
  Receive Date: 20150113
  Receipt Date: 20150113
  Transmission Date: 20150721
  Serious: No
  Sender: FDA-Public Use
  Company Number: US-SHIRE-US201500053

PATIENT
  Age: 8 Year
  Sex: Female

DRUGS (1)
  1. VYVANSE [Suspect]
     Active Substance: LISDEXAMFETAMINE DIMESYLATE
     Indication: PRODUCT USED FOR UNKNOWN INDICATION
     Dosage: UNK (10 MG, HALF OF A 20 MG TABLET), UNKNOWN
     Route: 048

REACTIONS (4)
  - Pain in extremity [Unknown]
  - Aggression [Unknown]
  - Drug effect decreased [Unknown]
  - Incorrect dose administered [Unknown]
